FAERS Safety Report 6636219-9 (Version None)
Quarter: 2010Q1

REPORT INFORMATION
  Report Type: 
  Country: None (occurrence: None)
  Receive Date: 20100316
  Receipt Date: 20100308
  Transmission Date: 20100710
  Serious: Yes (Other)
  Sender: FDA-Public Use
  Company Number: US-PFIZER INC-2010030864

PATIENT

DRUGS (2)
  1. TOVIAZ [Suspect]
     Dosage: UNK
  2. KLOR-CON [Suspect]
     Dosage: UNK

REACTIONS (1)
  - BLOOD POTASSIUM INCREASED [None]
